FAERS Safety Report 21335913 (Version 1)
Quarter: 2022Q3

REPORT INFORMATION
  Report Type: Report from Study
  Country: US (occurrence: US)
  Receive Date: 20220915
  Receipt Date: 20220915
  Transmission Date: 20221027
  Serious: Yes (Other)
  Sender: FDA-Public Use
  Company Number: US-JNJFOC-20220915274

PATIENT
  Sex: Female

DRUGS (1)
  1. STELARA [Suspect]
     Active Substance: USTEKINUMAB
     Indication: Crohn^s disease
     Route: 040

REACTIONS (5)
  - Depressed level of consciousness [Unknown]
  - Dizziness postural [Unknown]
  - Back pain [Unknown]
  - Feeling jittery [Unknown]
  - Headache [Unknown]

NARRATIVE: CASE EVENT DATE: 20220903
